FAERS Safety Report 14933884 (Version 1)
Quarter: 2018Q2

REPORT INFORMATION
  Report Type: Spontaneous
  Country: JP (occurrence: JP)
  Receive Date: 20180524
  Receipt Date: 20180524
  Transmission Date: 20180711
  Serious: Yes (Death, Hospitalization)
  Sender: FDA-Public Use
  Company Number: PHBS1993JP00779

PATIENT
  Age: 43 Year
  Sex: Male

DRUGS (8)
  1. SANDIMMUN [Suspect]
     Active Substance: CYCLOSPORINE
     Indication: BONE MARROW TRANSPLANT
     Dosage: 200 MG, QD
     Route: 065
     Dates: start: 19920917
  2. SANDIMMUN [Suspect]
     Active Substance: CYCLOSPORINE
     Dosage: 80 MG, QD
     Route: 041
     Dates: start: 19921103, end: 19921115
  3. CYCLOPHOSPHAMIDE. [Concomitant]
     Active Substance: CYCLOPHOSPHAMIDE
     Indication: PRODUCT USED FOR UNKNOWN INDICATION
     Route: 065
  4. CYTARABINE. [Concomitant]
     Active Substance: CYTARABINE
     Indication: PRODUCT USED FOR UNKNOWN INDICATION
     Route: 065
  5. SANDIMMUN [Suspect]
     Active Substance: CYCLOSPORINE
     Indication: GRAFT VERSUS HOST DISEASE
     Dosage: 120 MG, QD
     Route: 041
     Dates: start: 19921023, end: 19921028
  6. SANDIMMUN [Suspect]
     Active Substance: CYCLOSPORINE
     Dosage: 200 MG, QD
     Route: 041
     Dates: start: 19920916, end: 19920930
  7. SANDIMMUN [Suspect]
     Active Substance: CYCLOSPORINE
     Dosage: 160 MG, QD
     Route: 041
     Dates: start: 19921001, end: 19921022
  8. SANDIMMUN [Suspect]
     Active Substance: CYCLOSPORINE
     Dosage: 100 MG, QD
     Route: 041
     Dates: start: 19921029, end: 19921102

REACTIONS (7)
  - Thrombocytopenia [Unknown]
  - Respiratory failure [Unknown]
  - Viral infection [Unknown]
  - Blood creatinine increased [Unknown]
  - Proteinuria [Unknown]
  - Anaemia [Unknown]
  - Haemolytic uraemic syndrome [Fatal]

NARRATIVE: CASE EVENT DATE: 19921119
